FAERS Safety Report 6390181-5 (Version None)
Quarter: 2009Q4

REPORT INFORMATION
  Report Type: 
  Country: None (occurrence: None)
  Receive Date: 20091005
  Receipt Date: 20091005
  Transmission Date: 20100525
  Serious: No
  Sender: FDA-Public Use
  Company Number: None

PATIENT
  Age: 57 Year
  Sex: Male

DRUGS (1)
  1. METOLAZONE [Suspect]
     Indication: HYPERTENSION
     Dosage: 5 MG EVERY DAY PO
     Route: 048
     Dates: start: 20090105, end: 20090817

REACTIONS (3)
  - ANGIOEDEMA [None]
  - DYSPHAGIA [None]
  - OROPHARYNGEAL PAIN [None]
